FAERS Safety Report 4760374-9 (Version None)
Quarter: 2005Q3

REPORT INFORMATION
  Report Type: 
  Country: None (occurrence: None)
  Receive Date: 20050826
  Receipt Date: 20050518
  Transmission Date: 20060218
  Serious: Yes (Life-Threatening)
  Sender: FDA-Public Use
  Company Number: 243917

PATIENT
  Age: 74 Year
  Sex: Male
  Weight: 98.9 kg

DRUGS (8)
  1. NOVOLIN R [Suspect]
     Indication: INSULIN-REQUIRING TYPE II DIABETES MELLITUS
     Dosage: SLIDING SCALE 1U, QD, SUBCUTANEOUS
     Route: 058
     Dates: start: 20050429, end: 20050429
  2. LASIX [Concomitant]
  3. TOLAZAMIDE (TOLAZAMIDE) [Concomitant]
  4. ALLEGRA [Concomitant]
  5. QVAR (BECLOMETASONE DIPROPIONATE) [Concomitant]
  6. SEREVENT [Concomitant]
  7. POTASSIUM CHLORIDE [Concomitant]
  8. OCUVITE (ASCORBIC ACID, RETINOL, TOCOPHEROL) [Concomitant]

REACTIONS (1)
  - HYPOGLYCAEMIC COMA [None]
